FAERS Safety Report 21992633 (Version 1)
Quarter: 2023Q1

REPORT INFORMATION
  Report Type: Spontaneous
  Country: SE (occurrence: SE)
  Receive Date: 20230215
  Receipt Date: 20230215
  Transmission Date: 20230418
  Serious: No
  Sender: FDA-Public Use
  Company Number: SE-ALKEM LABORATORIES LIMITED-SE-ALKEM-2022-13493

PATIENT
  Age: 69 Year
  Sex: Male

DRUGS (4)
  1. ASPIRIN [Suspect]
     Active Substance: ASPIRIN
     Indication: Product used for unknown indication
     Dosage: 500 MILLIGRAM, OD (1 TABLET IN THE EARLY MORNING)
     Route: 065
  2. DICLOFENAC [Suspect]
     Active Substance: DICLOFENAC
     Indication: Muscle spasms
     Dosage: 50 MILLIGRAM, OD TABLET (AT 10 PM THE EVENING)
     Route: 065
  3. DEXTROSE [Concomitant]
     Active Substance: DEXTROSE
     Indication: Product used for unknown indication
     Dosage: 75 GRAM (STARTED AT 8.00 AM AT A FASTING STATE)
     Route: 065
  4. LEVOTHYROXINE [Concomitant]
     Active Substance: LEVOTHYROXINE
     Indication: Product used for unknown indication
     Dosage: 150 MICROGRAM, QD (DAILY FOR 30 YEARS)
     Route: 065

REACTIONS (1)
  - Hypoglycaemia [Unknown]
